FAERS Safety Report 22632717 (Version 2)
Quarter: 2023Q2

REPORT INFORMATION
  Report Type: Other
  Country: US (occurrence: None)
  Receive Date: 20230623
  Receipt Date: 20230629
  Transmission Date: 20230722
  Serious: Yes (Other)
  Sender: FDA-Public Use
  Company Number: US-ROCHE-3372911

PATIENT
  Age: 71 Year
  Sex: Female
  Weight: 55.388 kg

DRUGS (7)
  1. ESBRIET [Suspect]
     Active Substance: PIRFENIDONE
     Indication: Product used for unknown indication
     Route: 065
     Dates: start: 202304
  2. TYVASO [Suspect]
     Active Substance: TREPROSTINIL
     Indication: Pulmonary arterial hypertension
     Route: 055
     Dates: start: 202304
  3. TYVASO [Suspect]
     Active Substance: TREPROSTINIL
     Route: 055
  4. TYVASO [Suspect]
     Active Substance: TREPROSTINIL
     Route: 055
  5. TYVASO [Suspect]
     Active Substance: TREPROSTINIL
     Route: 055
  6. TYVASO [Suspect]
     Active Substance: TREPROSTINIL
     Route: 055
  7. ESBRIET [Suspect]
     Active Substance: PIRFENIDONE
     Indication: Idiopathic pulmonary fibrosis
     Dosage: TAKE 3 TABLETS BY MOUTH 3 TIMES A DAY
     Route: 048

REACTIONS (7)
  - Rib fracture [Unknown]
  - Back disorder [Unknown]
  - Cough [Not Recovered/Not Resolved]
  - Weight decreased [Not Recovered/Not Resolved]
  - Decreased appetite [Unknown]
  - Early satiety [Unknown]
  - Taste disorder [Unknown]
